FAERS Safety Report 24325435 (Version 1)
Quarter: 2024Q3

REPORT INFORMATION
  Report Type: Spontaneous
  Country: GB (occurrence: GB)
  Receive Date: 20240917
  Receipt Date: 20240917
  Transmission Date: 20241016
  Serious: Yes (Hospitalization, Other)
  Sender: AMNEAL
  Company Number: GB-AMNEAL PHARMACEUTICALS-2024-AMRX-03345

PATIENT
  Sex: Male
  Weight: 60 kg

DRUGS (1)
  1. DIVALPROEX SODIUM ER [Suspect]
     Active Substance: DIVALPROEX SODIUM
     Indication: Product used for unknown indication
     Dosage: 65 TABLETS (13 G)
     Route: 065

REACTIONS (15)
  - Acute respiratory distress syndrome [Recovered/Resolved]
  - Brain oedema [Recovered/Resolved]
  - Intentional overdose [Recovered/Resolved]
  - Metabolic acidosis [Recovered/Resolved]
  - Toxicity to various agents [Recovered/Resolved]
  - Hypoxia [Recovered/Resolved]
  - Depressed level of consciousness [Recovered/Resolved]
  - Hyperlactacidaemia [Recovered/Resolved]
  - Condition aggravated [Recovered/Resolved]
  - Musculoskeletal stiffness [None]
  - Agitation [Recovered/Resolved]
  - Hypotension [Recovered/Resolved]
  - Tachycardia [Recovered/Resolved]
  - Urinary incontinence [Recovered/Resolved]
  - Anal incontinence [Recovered/Resolved]
